FAERS Safety Report 22626173 (Version 1)
Quarter: 2023Q2

REPORT INFORMATION
  Report Type: Spontaneous
  Country: FR (occurrence: None)
  Receive Date: 20230621
  Receipt Date: 20230621
  Transmission Date: 20230722
  Serious: Yes (Other)
  Sender: FDA-Public Use
  Company Number: 2023A142160

PATIENT

DRUGS (1)
  1. KOSELUGO [Suspect]
     Active Substance: SELUMETINIB
     Indication: Neurofibromatosis
     Dosage: IN ONE OR TWO DAILY DOSES.
     Route: 048

REACTIONS (2)
  - Toxicity to various agents [Unknown]
  - Gastrointestinal disorder [Unknown]
